FAERS Safety Report 20803780 (Version 1)
Quarter: 2022Q2

REPORT INFORMATION
  Report Type: Spontaneous
  Country: US (occurrence: US)
  Receive Date: 20220509
  Receipt Date: 20220509
  Transmission Date: 20220721
  Serious: No
  Sender: FDA-Public Use
  Company Number: US-PFIZER INC-202200671341

PATIENT
  Age: 76 Year
  Sex: Male

DRUGS (12)
  1. PAXLOVID [Suspect]
     Active Substance: NIRMATRELVIR\RITONAVIR
     Indication: COVID-19 treatment
     Dosage: UNK
     Dates: start: 20220412, end: 20220416
  2. HYDROCHLOROTHIAZIDE [Concomitant]
     Active Substance: HYDROCHLOROTHIAZIDE
     Dosage: 12.6 MG
     Dates: start: 20180102
  3. ATORVASTATIN [Concomitant]
     Active Substance: ATORVASTATIN
     Dosage: 10 MG
     Dates: start: 20220103, end: 20220412
  4. FLAXSEED OIL NATURE MADE [Concomitant]
     Dosage: 1400 MG
     Dates: start: 20200303
  5. MATURE MULTIVITAMINS [Concomitant]
     Dosage: UNK
     Dates: start: 20150707
  6. GLUCOSAMINE + CHONDORITIN [Concomitant]
     Dosage: UNK (GLUCOSAMINE 1500 CHONDROITIN)
     Dates: start: 20150707
  7. TRUNATURE MEMORY COMPLEX [Concomitant]
     Dosage: UNK
     Dates: start: 20150707
  8. VITAMIN D3 [Concomitant]
     Active Substance: CHOLECALCIFEROL
     Dosage: 20000 IU
     Dates: start: 20150707
  9. COENZYME Q10 [Concomitant]
     Active Substance: DIETARY SUPPLEMENT\UBIDECARENONE
     Dosage: 300 MG
     Dates: start: 20150707
  10. VITAMIN B12 [Concomitant]
     Active Substance: CYANOCOBALAMIN
     Dosage: 1000 UG
     Dates: start: 20150707
  11. ASPIRIN [Concomitant]
     Active Substance: ASPIRIN
     Dosage: 81 MG
     Dates: start: 20150707
  12. HERBALS\TURMERIC [Concomitant]
     Active Substance: HERBALS\TURMERIC
     Dosage: 1500 MG
     Dates: start: 20150707

REACTIONS (2)
  - COVID-19 [Recovered/Resolved]
  - Disease recurrence [Recovered/Resolved]

NARRATIVE: CASE EVENT DATE: 20220427
